FAERS Safety Report 7397191-X (Version None)
Quarter: 2011Q2

REPORT INFORMATION
  Report Type: 
  Country: None (occurrence: None)
  Receive Date: 20110406
  Receipt Date: 20110315
  Transmission Date: 20111010
  Serious: Yes (Hospitalization, Other)
  Sender: FDA-Public Use
  Company Number: US-BAYER-2011-023006

PATIENT
  Sex: Female
  Weight: 77 kg

DRUGS (4)
  1. HYDROCODONE BITARTRATE AND ACETAMINOPHEN [Concomitant]
     Dosage: 5/325 MG, PRN
     Route: 048
  2. YASMIN [Suspect]
     Indication: CONTRACEPTION
     Dosage: UNK, QD
     Dates: start: 20060801, end: 20081001
  3. YASMIN [Suspect]
     Indication: MENSTRUAL CYCLE MANAGEMENT
  4. MULTI-VITAMIN [Concomitant]
     Dosage: 1 TAB
     Route: 048

REACTIONS (3)
  - CHOLELITHIASIS [None]
  - ABDOMINAL PAIN [None]
  - CHOLECYSTITIS CHRONIC [None]
